FAERS Safety Report 8671350 (Version 19)
Quarter: 2014Q1

REPORT INFORMATION
  Report Type: Report from Study
  Country: CA (occurrence: CA)
  Receive Date: 20120718
  Receipt Date: 20140121
  Transmission Date: 20141002
  Serious: Yes (Death, Hospitalization, Other)
  Sender: FDA-Public Use
  Company Number: PHHY2011CA27881

PATIENT
  Age: 73 Year
  Sex: Male

DRUGS (10)
  1. SANDOSTATIN LAR [Suspect]
     Indication: NEUROENDOCRINE CARCINOMA
     Dosage: 30 MG, EVERY 4 WEEKS
     Route: 030
     Dates: start: 20110128
  2. SANDOSTATIN LAR [Suspect]
     Dosage: 10 MG, EVERY 4 WEEKS
     Route: 030
  3. SANDOSTATIN LAR [Suspect]
     Dosage: 30 MG, EVERY 4 WEEKS
     Route: 030
  4. SANDOSTATIN LAR [Suspect]
     Dosage: 60 MG, UKN
     Route: 030
     Dates: start: 20131010
  5. SANDOSTATIN LAR [Suspect]
     Dosage: 30 MG, EVERY 4 WEEKS
     Route: 030
     Dates: end: 20131106
  6. TEMODAL [Concomitant]
  7. ZOFRAN [Concomitant]
     Dosage: 8 MG, PRN
  8. METFORMIN [Concomitant]
  9. TRAJENTA [Concomitant]
  10. CHEMOTHERAPEUTICS [Concomitant]

REACTIONS (22)
  - Death [Fatal]
  - Pneumonia [Unknown]
  - Weight decreased [Unknown]
  - Dehydration [Unknown]
  - Malignant neoplasm progression [Unknown]
  - Hormone level abnormal [Unknown]
  - Diarrhoea [Unknown]
  - Local swelling [Unknown]
  - Influenza [Unknown]
  - Blood pressure increased [Unknown]
  - Thirst [Unknown]
  - Nasopharyngitis [Unknown]
  - Dysuria [Unknown]
  - Flat affect [Unknown]
  - Gout [Unknown]
  - Fatigue [Unknown]
  - Nausea [Unknown]
  - Flatulence [Unknown]
  - Hyperglycaemia [Unknown]
  - Heart rate irregular [Unknown]
  - Decreased appetite [Unknown]
  - Malaise [Unknown]
